FAERS Safety Report 12548891 (Version 2)
Quarter: 2016Q4

REPORT INFORMATION
  Report Type: Spontaneous
  Country: US (occurrence: US)
  Receive Date: 20160712
  Receipt Date: 20161013
  Transmission Date: 20170207
  Serious: Yes (Hospitalization)
  Sender: FDA-Public Use
  Company Number: US-AUROBINDO-AUR-APL-2016-08755

PATIENT
  Age: 51 Year
  Sex: Male

DRUGS (1)
  1. IBUPROFEN. [Suspect]
     Active Substance: IBUPROFEN
     Indication: ARTHRITIS
     Route: 065

REACTIONS (12)
  - Oesophageal fibrosis [Unknown]
  - Pain [Unknown]
  - Dyspnoea [Unknown]
  - Oesophageal rupture [Unknown]
  - Pleural effusion [Unknown]
  - Dysphagia [Unknown]
  - Abdominal tenderness [Unknown]
  - Pneumothorax [Unknown]
  - Chest pain [Unknown]
  - Pneumomediastinum [Unknown]
  - Condition aggravated [Unknown]
  - Haematemesis [Unknown]
